FAERS Safety Report 26020649 (Version 2)
Quarter: 2025Q4

REPORT INFORMATION
  Report Type: Spontaneous
  Country: GB (occurrence: GB)
  Receive Date: 20251110
  Receipt Date: 20251217
  Transmission Date: 20260117
  Serious: Yes (Life-Threatening, Other)
  Sender: ALKEM
  Company Number: None

PATIENT
  Age: 48 Year
  Sex: Male
  Weight: 120 kg

DRUGS (1)
  1. ARIPIPRAZOLE [Suspect]
     Active Substance: ARIPIPRAZOLE
     Indication: Product used for unknown indication
     Dosage: UNK
     Route: 065

REACTIONS (1)
  - Suicide attempt [Recovering/Resolving]
